FAERS Safety Report 17780017 (Version 26)
Quarter: 2022Q2

REPORT INFORMATION
  Report Type: Report from Study
  Country: JP (occurrence: JP)
  Receive Date: 20200514
  Receipt Date: 20220512
  Transmission Date: 20220720
  Serious: Yes (Death, Hospitalization, Other)
  Sender: FDA-Public Use
  Company Number: JP-BRISTOL-MYERS SQUIBB COMPANY-BMS-2020-037841

PATIENT
  Age: 67 Year
  Sex: Male
  Weight: 57.7 kg

DRUGS (18)
  1. YERVOY [Suspect]
     Active Substance: IPILIMUMAB
     Indication: Metastatic renal cell carcinoma
     Dosage: 1 MG/KG
     Route: 041
     Dates: start: 20200310, end: 20200511
  2. YERVOY [Suspect]
     Active Substance: IPILIMUMAB
     Dosage: 1 MILLIGRAM/KILOGRAM, ONE TIME DOSE
     Route: 041
     Dates: start: 20200331, end: 20200331
  3. YERVOY [Suspect]
     Active Substance: IPILIMUMAB
     Dosage: 1 MILLIGRAM/KILOGRAM, ONE TIME DOSE
     Route: 041
     Dates: start: 20200420, end: 20200420
  4. YERVOY [Suspect]
     Active Substance: IPILIMUMAB
     Dosage: 1 MILLIGRAM/KILOGRAM, ONE TIME DOSE
     Route: 041
     Dates: start: 20200511, end: 20200511
  5. OPDIVO [Suspect]
     Active Substance: NIVOLUMAB
     Indication: Metastatic renal cell carcinoma
     Dosage: 240 MILLIGRAM, ONE TIME DOSE
     Route: 041
     Dates: start: 20200310, end: 20200310
  6. OPDIVO [Suspect]
     Active Substance: NIVOLUMAB
     Dosage: 240 MILLIGRAM, ONE TIME DOSE
     Route: 065
     Dates: start: 20200331, end: 20200331
  7. OPDIVO [Suspect]
     Active Substance: NIVOLUMAB
     Dosage: 240 MILLIGRAM, ONE TIME DOSE
     Route: 065
     Dates: start: 20200420, end: 20200420
  8. OPDIVO [Suspect]
     Active Substance: NIVOLUMAB
     Dosage: 240 MILLIGRAM, ONE TIME DOSE
     Route: 065
     Dates: start: 20200511, end: 20200511
  9. OLMESARTAN MEDOXOMIL [Suspect]
     Active Substance: OLMESARTAN MEDOXOMIL
     Indication: Hypertension
     Dosage: 20 MG, AFTER BREAKFAST
     Route: 048
     Dates: start: 20190101, end: 20200313
  10. PREDONINE [Suspect]
     Active Substance: PREDNISOLONE
     Indication: Liver disorder
     Dosage: 40 MG IN MORNING, 15 MG AT NOON
     Route: 048
     Dates: start: 20200623, end: 20200706
  11. PREDONINE [Suspect]
     Active Substance: PREDNISOLONE
     Dosage: 30 MG IN MORNING, 20 MG AT NOON
     Route: 048
     Dates: start: 20200707, end: 20200720
  12. PREDONINE [Suspect]
     Active Substance: PREDNISOLONE
     Dosage: 30 MG IN MORNING, 10 MG AT NOON
     Route: 048
     Dates: start: 20200721, end: 20200727
  13. PREDONINE [Suspect]
     Active Substance: PREDNISOLONE
     Dosage: 25 MG IN MORNING, 10 MG AT NOON
     Route: 048
     Dates: start: 20200728, end: 20200810
  14. PREDONINE [Suspect]
     Active Substance: PREDNISOLONE
     Dosage: 20 MG IN MORNING, 10 MG AT NOON
     Route: 048
     Dates: start: 20200811, end: 20200817
  15. PREDONINE [Suspect]
     Active Substance: PREDNISOLONE
     Dosage: 20 MG IN MORNING, 5 MG AT NOON
     Route: 048
     Dates: start: 20200818, end: 20200824
  16. PREDONINE [Suspect]
     Active Substance: PREDNISOLONE
     Dosage: 20 MG IN MORNING
     Route: 048
     Dates: start: 20200825, end: 20200829
  17. INLYTA [Concomitant]
     Active Substance: AXITINIB
     Indication: Renal cell carcinoma
     Route: 065
     Dates: start: 202102
  18. INLYTA [Concomitant]
     Active Substance: AXITINIB
     Dosage: UNK
     Route: 065
     Dates: end: 202102

REACTIONS (13)
  - Anal fistula infection [Fatal]
  - Sepsis [Fatal]
  - Immune-mediated hepatitis [Recovering/Resolving]
  - Immune-mediated myocarditis [Recovering/Resolving]
  - Hypothyroidism [Recovering/Resolving]
  - Steroid diabetes [Recovering/Resolving]
  - Upper respiratory tract infection [Recovered/Resolved]
  - Blood pressure decreased [Recovering/Resolving]
  - Stomatitis [Recovered/Resolved]
  - Pyrexia [Recovered/Resolved]
  - Insomnia [Recovering/Resolving]
  - Wound haemorrhage [Unknown]
  - Anal fistula [Unknown]

NARRATIVE: CASE EVENT DATE: 20200313
